FAERS Safety Report 8726568 (Version 3)
Quarter: 2012Q4

REPORT INFORMATION
  Report Type: 
  Country: US (occurrence: US)
  Receive Date: 20120816
  Receipt Date: 20120913
  Transmission Date: 20130627
  Serious: No
  Sender: FDA-Public Use
  Company Number: PHEH2012US015593

PATIENT
  Sex: Male

DRUGS (5)
  1. FTY 720 [Suspect]
     Indication: PRIMARY PROGRESSIVE MULTIPLE SCLEROSIS
     Dates: start: 201105
  2. CRESTOR [Concomitant]
     Dosage: 20 mg, daily
     Route: 048
  3. VESICARE [Concomitant]
     Route: 048
  4. AMITRIPTYLINE [Concomitant]
     Dosage: 10 mg at bed time
     Route: 048
  5. LEVITRA [Concomitant]
     Route: 048

REACTIONS (1)
  - Blood pressure decreased [Recovered/Resolved]
